FAERS Safety Report 7689317-5 (Version None)
Quarter: 2011Q3

REPORT INFORMATION
  Report Type: 
  Country: None (occurrence: None)
  Receive Date: 20110817
  Receipt Date: 20110810
  Transmission Date: 20111222
  Serious: Yes (Other)
  Sender: FDA-Public Use
  Company Number: US-BAYER-201018676NA

PATIENT
  Sex: Male
  Weight: 125 kg

DRUGS (41)
  1. ASPIRIN [Concomitant]
     Dosage: 325 MG, QD
     Route: 048
     Dates: start: 19900101, end: 20050101
  2. AVANDIA [Concomitant]
     Dosage: UNK
     Dates: start: 20040101
  3. RED BLOOD CELLS [Concomitant]
     Dosage: 4 U, UNK
     Route: 042
     Dates: start: 20050214, end: 20050214
  4. AUGMENTIN '125' [Concomitant]
     Dosage: 500 MG, TID
     Route: 048
     Dates: start: 20020201
  5. CLINDAMYCIN [Concomitant]
     Dosage: 600 MG, TID
     Route: 042
     Dates: start: 20040501, end: 20040501
  6. TRASYLOL [Suspect]
     Dosage: 100 ML LOADING DOSE
     Route: 042
     Dates: start: 20050214, end: 20050214
  7. SUCCINYLCHOLINE CHLORIDE [Concomitant]
     Dosage: 160 MG, UNK
     Route: 042
     Dates: start: 20050214, end: 20050214
  8. PROPOFOL [Concomitant]
     Dosage: 50MG/KG/MIN
     Route: 042
     Dates: start: 20050214, end: 20050214
  9. CEFAZOLIN [Concomitant]
     Dosage: 2 MG, UNK
     Route: 042
     Dates: start: 20050214, end: 20050214
  10. SUFENTA PRESERVATIVE FREE [Concomitant]
     Dosage: 1000 MG, UNK
     Route: 042
     Dates: start: 20050214, end: 20050214
  11. TEQUIN [Concomitant]
     Dosage: 400 MG, QD
     Route: 042
     Dates: start: 20040501, end: 20040501
  12. TRASYLOL [Suspect]
     Indication: CORONARY ARTERY BYPASS
     Dosage: 1 ML, ONCE, INITIAL TEST DOSE
     Route: 042
     Dates: start: 20050214, end: 20050214
  13. UNASYN [Concomitant]
     Dosage: 3 GMS EVERY 6-8 HOURS
     Route: 042
     Dates: start: 20020201
  14. METFORMIN HCL [Concomitant]
     Dosage: 1000 MG, UNK
     Dates: start: 20021126, end: 20030716
  15. LOPRESSOR [Concomitant]
     Dosage: 100 MG, BID
     Route: 048
  16. NITROGLYCERIN [Concomitant]
     Dosage: 0.4MG EVERY 5 MINUTES PRN PAIN
     Route: 060
  17. NITROGLYCERIN [Concomitant]
     Dosage: 1 INCH Q6H TO CHEST WALL
  18. RED BLOOD CELLS [Concomitant]
     Dosage: 2 UNK, UNK
     Dates: start: 20050303
  19. PLATELETS [Concomitant]
     Dosage: 12 U, UNK
     Route: 042
     Dates: start: 20050214, end: 20050214
  20. PROTAMINE [Concomitant]
     Dosage: 500 MG, CARDIOPULMONARY BYPASS
     Dates: start: 20050214, end: 20050214
  21. LISINOPRIL [Concomitant]
     Dosage: 10 MG, UNK
     Route: 048
  22. NORVASC [Concomitant]
     Dosage: 5 MG, QD
     Route: 048
  23. TYLENOL REGULAR [Concomitant]
     Dosage: 650MG Q4-5H PRN FOR HEADACHES
     Route: 048
  24. NITROGLYCERIN [Concomitant]
     Dosage: DRIP
     Route: 042
     Dates: start: 20050214, end: 20050214
  25. CEFAZOLIN [Concomitant]
     Dosage: 2 MG, UNK
     Route: 042
     Dates: start: 20050214, end: 20050214
  26. HEPARIN [Concomitant]
     Dosage: 2000 U, UNK
     Route: 042
     Dates: start: 20050214, end: 20050214
  27. FRESH FROZEN PLASMA [Concomitant]
     Dosage: 2 U, UNK
     Route: 042
     Dates: start: 20050214, end: 20050214
  28. SOLU-MEDROL [Concomitant]
     Dosage: 250 MG, CARDIOPULMONARY BYPASS
     Dates: start: 20050214, end: 20050214
  29. LOVENOX [Concomitant]
     Dosage: 60 MG, BID
     Route: 058
     Dates: start: 20050208
  30. NOVOLOG [Concomitant]
     Dosage: 35 UNITS BEFORE BREAKFAST AND BEFORE DINNER
     Route: 058
     Dates: start: 20040101
  31. VECURONIUM BROMIDE [Concomitant]
     Dosage: 26 MG, UNK
     Route: 042
     Dates: start: 20050214, end: 20050214
  32. HEPARIN [Concomitant]
     Dosage: 35000 UNITS
     Route: 042
     Dates: start: 20050214, end: 20050214
  33. SOLU-MEDROL [Concomitant]
     Dosage: 125 MG, UNK
     Route: 042
     Dates: start: 20050214, end: 20050214
  34. INSULIN [Concomitant]
     Dosage: TIMES 1
     Route: 042
     Dates: start: 20050214, end: 20050214
  35. CIPROFLOXACIN [Concomitant]
     Dosage: 500 MG, BID
     Route: 048
     Dates: start: 20040501
  36. LASIX [Concomitant]
     Dosage: 40 MG, BID
     Route: 042
  37. REMIFENTANIL [Concomitant]
     Dosage: 10MG/KG/MIN
     Route: 042
     Dates: start: 20050214, end: 20050214
  38. MIDAZOLAM HCL [Concomitant]
     Dosage: 15 MG, UNK
     Route: 042
     Dates: start: 20050214, end: 20050214
  39. ETOMIDATE [Concomitant]
     Dosage: 36 MG, UNK
     Route: 042
     Dates: start: 20050214, end: 20050214
  40. HEPARIN [Concomitant]
     Dosage: 10000 UNITS, CARDIOPULMONARY BYPASS
     Dates: start: 20050214, end: 20050214
  41. CLONIDINE [Concomitant]
     Dosage: 0.1 MG, PRN
     Route: 048
     Dates: start: 20050201

REACTIONS (8)
  - EMOTIONAL DISTRESS [None]
  - RENAL FAILURE [None]
  - RENAL INJURY [None]
  - STRESS [None]
  - FEAR [None]
  - ANXIETY [None]
  - RENAL IMPAIRMENT [None]
  - PAIN [None]
